FAERS Safety Report 9366578 (Version 1)
Quarter: 2013Q2

REPORT INFORMATION
  Report Type: Spontaneous
  Country: US (occurrence: None)
  Receive Date: 20130625
  Receipt Date: 20130625
  Transmission Date: 20140414
  Serious: Yes (Other)
  Sender: FDA-Public Use
  Company Number: None

PATIENT
  Age: 59 Year
  Sex: Female
  Weight: 55 kg

DRUGS (1)
  1. CEFTRIAXONE POWDER FOR INJECTION 2 GRAMS APOTEX [Suspect]
     Indication: LYME DISEASE
     Dosage: CETRIAXONE 2GRAMS Q24HOURS IV PUSH
     Route: 042
     Dates: start: 20130520

REACTIONS (2)
  - Drug ineffective [None]
  - Product deposit [None]
